FAERS Safety Report 9013602 (Version 1)
Quarter: 2013Q1

REPORT INFORMATION
  Report Type: Spontaneous
  Country: US (occurrence: None)
  Receive Date: 20130109
  Receipt Date: 20130109
  Transmission Date: 20140127
  Serious: Yes (Hospitalization)
  Sender: FDA-Public Use
  Company Number: None

PATIENT
  Sex: Male
  Weight: 61.4 kg

DRUGS (8)
  1. TEMOZOLOMIDE [Suspect]
  2. FLOMAX [Concomitant]
  3. KAY CIEL [Concomitant]
  4. KEPPRA [Concomitant]
  5. LAMICTAL [Concomitant]
  6. MEFORMIN [Concomitant]
  7. WARFARIN [Concomitant]
  8. ZOCOR [Concomitant]

REACTIONS (3)
  - Convulsion [None]
  - Confusional state [None]
  - Pancytopenia [None]
